FAERS Safety Report 7447106-0 (Version None)
Quarter: 2011Q2

REPORT INFORMATION
  Report Type: 
  Country: None (occurrence: None)
  Receive Date: 20110429
  Receipt Date: 20110418
  Transmission Date: 20111010
  Serious: Yes (Hospitalization, Other)
  Sender: FDA-Public Use
  Company Number: US-ELI_LILLY_AND_COMPANY-US201101006877

PATIENT
  Sex: Female

DRUGS (11)
  1. AMBIEN [Concomitant]
     Dosage: 10 MG, EACH EVENING
  2. ALLEGRA [Concomitant]
     Dosage: 60 MG, QD
  3. EVISTA [Suspect]
  4. PLAVIX [Concomitant]
     Dosage: 25 MG, QD
  5. NEURONTIN [Concomitant]
  6. MIRTAZAPINE [Concomitant]
     Dosage: 5 MG, QD
  7. FORTEO [Suspect]
     Indication: OSTEOPOROSIS
     Dosage: 20 UG, DAILY (1/D)
     Route: 058
     Dates: start: 20090602, end: 20100601
  8. FOSAMAX [Concomitant]
  9. AMITRIPTLINE HYDROCHLORIDE TAB [Concomitant]
     Dosage: 50 MG, QD
  10. LIPITOR [Concomitant]
     Dosage: 10 MG, QD
  11. SKELAXIN [Concomitant]
     Dosage: 80 MG, BID

REACTIONS (2)
  - PANCREATIC CARCINOMA [None]
  - FRACTURE [None]
